FAERS Safety Report 23607361 (Version 4)
Quarter: 2024Q3

REPORT INFORMATION
  Report Type: Spontaneous
  Country: JP (occurrence: JP)
  Receive Date: 20240307
  Receipt Date: 20240826
  Transmission Date: 20241016
  Serious: Yes (Death, Life-Threatening, Hospitalization)
  Sender: EISAI
  Company Number: JP-Eisai Medical Research-EC-2022-125018

PATIENT
  Age: 59 Year
  Sex: Female

DRUGS (16)
  1. LENVIMA [Suspect]
     Active Substance: LENVATINIB
     Indication: Endometrial adenocarcinoma
     Route: 048
     Dates: start: 20220214, end: 20220221
  2. LENVIMA [Suspect]
     Active Substance: LENVATINIB
     Route: 048
     Dates: start: 2022, end: 20220315
  3. LENVIMA [Suspect]
     Active Substance: LENVATINIB
     Route: 048
     Dates: start: 20220318
  4. LENVIMA [Suspect]
     Active Substance: LENVATINIB
     Route: 048
     Dates: start: 2022, end: 20220830
  5. KEYTRUDA [Suspect]
     Active Substance: PEMBROLIZUMAB
     Indication: Endometrial adenocarcinoma
     Route: 042
     Dates: start: 20220214, end: 20220719
  6. SULFAMETHOXAZOLE\TRIMETHOPRIM [Suspect]
     Active Substance: SULFAMETHOXAZOLE\TRIMETHOPRIM
     Indication: Pulmonary toxicity
     Route: 065
     Dates: start: 20220901, end: 20220913
  7. SHAKUYAKUKANZOTO [Concomitant]
     Active Substance: HERBALS
     Indication: Muscle spasms
     Dosage: DOSE AND FREQUENCY UNKNOWN
     Route: 065
  8. SHAKUYAKUKANZOTO [Concomitant]
     Active Substance: HERBALS
     Indication: Tongue spasm
  9. CALCIUM ASPARTATE [Concomitant]
     Active Substance: CALCIUM ASPARTATE
     Indication: Hypocalcaemia
     Dosage: DOSE AND FREQUENCY UNKNOWN
     Route: 065
     Dates: start: 20220329
  10. ALFACALCIDOL [Concomitant]
     Active Substance: ALFACALCIDOL
     Indication: Hypocalcaemia
     Dosage: DOSE AND FREQUENCY UNKNOWN
     Route: 065
  11. MAGNESIUM SULFATE [Concomitant]
     Active Substance: MAGNESIUM SULFATE\MAGNESIUM SULFATE HEPTAHYDRATE
     Indication: Hypomagnesaemia
     Dosage: DOSE UNKNOWN
     Route: 065
     Dates: start: 202204
  12. LANSOPRAZOLE [Concomitant]
     Active Substance: LANSOPRAZOLE
     Indication: Gastrooesophageal reflux disease
     Dosage: PERORAL MEDICINE
  13. DESYREL [Concomitant]
     Active Substance: TRAZODONE HYDROCHLORIDE
     Indication: Product used for unknown indication
     Dosage: DOSE AND FREQUENCY UNKNOWN
     Route: 048
  14. EDOXABAN TOSYLATE [Concomitant]
     Active Substance: EDOXABAN TOSYLATE
     Indication: Ovarian vein thrombosis
     Dosage: DOSE AND FREQUENCY UNKNOWN; PERORAL MEDICINE
  15. TRAMADOL [Concomitant]
     Active Substance: TRAMADOL\TRAMADOL HYDROCHLORIDE
     Indication: Product used for unknown indication
     Dosage: DOSE AND FREQUENCY UNKNOWN
  16. MAGNESIUM OXIDE [Concomitant]
     Active Substance: MAGNESIUM OXIDE
     Indication: Product used for unknown indication
     Dates: start: 20220408

REACTIONS (3)
  - Stevens-Johnson syndrome [Recovering/Resolving]
  - Malignant neoplasm progression [Fatal]
  - Drug eruption [Unknown]

NARRATIVE: CASE EVENT DATE: 20220914
